FAERS Safety Report 4791956-6 (Version None)
Quarter: 2005Q4

REPORT INFORMATION
  Report Type: 
  Country: None (occurrence: None)
  Receive Date: 20051005
  Receipt Date: 20050920
  Transmission Date: 20060501
  Serious: Yes (Death, Other)
  Sender: FDA-Public Use
  Company Number: GBS040915527

PATIENT
  Age: 34 Year
  Sex: Male

DRUGS (3)
  1. PROZAC [Suspect]
  2. OLANZAPINE [Concomitant]
  3. PARACETAMOL [Concomitant]

REACTIONS (22)
  - ACCIDENT [None]
  - BRONCHOPNEUMONIA [None]
  - CARDIOMEGALY [None]
  - DERMATITIS ATOPIC [None]
  - DERMATITIS BULLOUS [None]
  - DRUG LEVEL ABOVE THERAPEUTIC [None]
  - DRUG TOXICITY [None]
  - FALL [None]
  - HEPATIC STEATOSIS [None]
  - HEPATOMEGALY [None]
  - OVERDOSE [None]
  - PULMONARY ALVEOLAR HAEMORRHAGE [None]
  - PULMONARY CONGESTION [None]
  - PULMONARY EMBOLISM [None]
  - PULMONARY INFARCTION [None]
  - PULMONARY OEDEMA [None]
  - PULMONARY THROMBOSIS [None]
  - RASH [None]
  - SHOCK [None]
  - SKIN NECROSIS [None]
  - THERAPEUTIC RESPONSE INCREASED [None]
  - VASCULITIS [None]
